FAERS Safety Report 20248257 (Version 1)
Quarter: 2021Q4

REPORT INFORMATION
  Report Type: Spontaneous
  Country: US (occurrence: None)
  Receive Date: 20211228
  Receipt Date: 20211228
  Transmission Date: 20220303
  Serious: No
  Sender: FDA-Public Use
  Company Number: None

PATIENT
  Age: 83 Year
  Sex: Male

DRUGS (1)
  1. NEOMYCIN AND POLYMYXIN B SULFATES AND HYDROCORTISONE [Suspect]
     Active Substance: HYDROCORTISONE\NEOMYCIN SULFATE\POLYMYXIN B SULFATE
     Indication: Ear infection
     Dosage: FREQUENCY : 3 TIMES A DAY;?
     Route: 001
     Dates: start: 20211218, end: 20211218

REACTIONS (4)
  - Incorrect route of product administration [None]
  - Eye irritation [None]
  - Vision blurred [None]
  - Product dispensing error [None]

NARRATIVE: CASE EVENT DATE: 20211218
